FAERS Safety Report 18721433 (Version 1)
Quarter: 2021Q1

REPORT INFORMATION
  Report Type: Spontaneous
  Country: US (occurrence: US)
  Receive Date: 20210110
  Receipt Date: 20210110
  Transmission Date: 20210419
  Serious: No
  Sender: FDA-Public Use
  Company Number: US-ELI_LILLY_AND_COMPANY-US202012008969

PATIENT
  Age: 50 Year
  Sex: Male

DRUGS (2)
  1. SUDAFED [GUAIFENESIN;PSEUDOEPHEDRINE HYDROCHL [Concomitant]
     Indication: PRODUCT USED FOR UNKNOWN INDICATION
  2. TALTZ [Suspect]
     Active Substance: IXEKIZUMAB
     Indication: PSORIASIS
     Dosage: UNK UNK, UNKNOWN
     Route: 065
     Dates: start: 20190219

REACTIONS (4)
  - Sinusitis [Unknown]
  - Product dose omission issue [Unknown]
  - Sinus headache [Unknown]
  - COVID-19 [Unknown]

NARRATIVE: CASE EVENT DATE: 202007
